FAERS Safety Report 4338282-7 (Version None)
Quarter: 2004Q2

REPORT INFORMATION
  Report Type: 
  Country: None (occurrence: None)
  Receive Date: 20040409
  Receipt Date: 20040310
  Transmission Date: 20050107
  Serious: Yes (Death, Life-Threatening, Hospitalization)
  Sender: FDA-Public Use
  Company Number: F01200400485

PATIENT
  Age: 73 Year
  Sex: Male

DRUGS (9)
  1. (OXALIPLATIN) -SOLUTION - 151 MG [Suspect]
     Indication: COLORECTAL CANCER METASTATIC
     Dosage: 151 MG Q2W, INTRAVENOUS
     Route: 042
     Dates: start: 20040219, end: 20040219
  2. FLUOROURACIL [Suspect]
     Dosage: 712 MG BOLUS THEN 1068 MG CONTINUOUS INFUSION Q2W, INTRAVENOUS
     Route: 042
     Dates: start: 20020219, end: 20040220
  3. (LEUCOVORIN) - SOLUTION - 365 MG [Suspect]
     Dosage: 356 MG Q2W, INTRAVENOUS
     Route: 042
     Dates: start: 20040219, end: 20040220
  4. ADADLAT (NIFEDIPINE) [Concomitant]
  5. ATIVAN [Concomitant]
  6. PROCHLORPERAZINE [Concomitant]
  7. OLANZAPINE [Concomitant]
  8. CHLORPROMAZINE [Concomitant]
  9. WARFARIN SODIUM [Concomitant]

REACTIONS (8)
  - ATRIAL FIBRILLATION [None]
  - CONVULSION [None]
  - FEBRILE NEUTROPENIA [None]
  - HYPERNATRAEMIA [None]
  - MYOCARDIAL INFARCTION [None]
  - PNEUMONIA [None]
  - PNEUMOTHORAX [None]
  - SEPSIS [None]
